FAERS Safety Report 8527526-3 (Version None)
Quarter: 2012Q3

REPORT INFORMATION
  Report Type: 
  Country: None (occurrence: None)
  Receive Date: 20120721
  Receipt Date: 20120531
  Transmission Date: 20120928
  Serious: No
  Sender: FDA-Public Use
  Company Number: US-009507513-1207USA007224

PATIENT

DRUGS (1)
  1. DR. SCHOLL'S FOR HER 16 HOUR INSOLES [Suspect]
     Indication: PRODUCT USED FOR UNKNOWN INDICATION

REACTIONS (2)
  - THERAPEUTIC PRODUCT INEFFECTIVE [None]
  - BACK PAIN [None]
